FAERS Safety Report 5119964-6 (Version None)
Quarter: 2006Q3

REPORT INFORMATION
  Report Type: 
  Country: None (occurrence: None)
  Receive Date: 20060929
  Receipt Date: 20060908
  Transmission Date: 20061208
  Serious: Yes (Death)
  Sender: FDA-Public Use
  Company Number: 2006104705

PATIENT
  Age: 24 Year
  Sex: Female
  Weight: 40 kg

DRUGS (7)
  1. MAGNEX (SULBACTAM, CEFOPERAZONE) [Suspect]
     Indication: INTESTINAL PERFORATION
     Dosage: SEE IMAGE
     Route: 042
     Dates: start: 20060821, end: 20060824
  2. MAGNEX (SULBACTAM, CEFOPERAZONE) [Suspect]
     Indication: INTESTINAL PERFORATION
     Dosage: SEE IMAGE
     Route: 042
     Dates: start: 20060812
  3. AMIKACIN [Concomitant]
  4. METRON (IPROHEPTINE HYDROCHLORIDE) [Concomitant]
  5. DICYCLOMINE [Concomitant]
  6. PANTOPRAZOLE SODIUM [Concomitant]
  7. GLUCOSE (GLUCOSE) [Concomitant]

REACTIONS (4)
  - ABDOMINAL ABSCESS [None]
  - CARDIAC ARREST [None]
  - HAEMORRHAGE URINARY TRACT [None]
  - INTESTINAL PERFORATION [None]
